FAERS Safety Report 5496971-5 (Version None)
Quarter: 2007Q4

REPORT INFORMATION
  Report Type: 
  Country: None (occurrence: None)
  Receive Date: 20071025
  Receipt Date: 20071017
  Transmission Date: 20080405
  Serious: Yes (Other)
  Sender: FDA-Public Use
  Company Number: B0492556A

PATIENT
  Sex: Male

DRUGS (3)
  1. LAMIVUDINE [Suspect]
     Indication: DRUG USE FOR UNKNOWN INDICATION
     Dates: start: 20060327
  2. ZIDOVUDINE [Suspect]
     Indication: DRUG USE FOR UNKNOWN INDICATION
     Dates: start: 20060327
  3. KALETRA [Suspect]
     Indication: DRUG USE FOR UNKNOWN INDICATION
     Dates: start: 20060327

REACTIONS (6)
  - CONGENITAL GASTRIC ANOMALY [None]
  - DRUG EXPOSURE DURING PREGNANCY [None]
  - GASTRIC DISORDER [None]
  - OESOPHAGEAL ATRESIA [None]
  - TRISOMY 18 [None]
  - VENTRICULAR SEPTAL DEFECT [None]
